FAERS Safety Report 6881791-7 (Version None)
Quarter: 2010Q3

REPORT INFORMATION
  Report Type: 
  Country: None (occurrence: None)
  Receive Date: 20100729
  Receipt Date: 20100718
  Transmission Date: 20110219
  Serious: Yes (Other)
  Sender: FDA-Public Use
  Company Number: US-PFIZER INC-2010090066

PATIENT
  Sex: Male
  Weight: 68.481 kg

DRUGS (4)
  1. LYRICA [Suspect]
     Indication: PAIN
     Dosage: 150 MG, 2X/DAY
     Route: 048
     Dates: start: 20100629, end: 20100716
  2. VITAMIN D [Concomitant]
     Dosage: UNK
     Route: 048
  3. COPPER [Concomitant]
     Dosage: UNK
     Route: 060
  4. NEURONTIN [Concomitant]
     Indication: PAIN
     Dosage: UNK
     Route: 048
     Dates: end: 20100629

REACTIONS (4)
  - ABDOMINAL DISTENSION [None]
  - FAT TISSUE INCREASED [None]
  - HALLUCINATION [None]
  - PANIC ATTACK [None]
